FAERS Safety Report 8466501 (Version 3)
Quarter: 2013Q1

REPORT INFORMATION
  Report Type: Spontaneous
  Country: CA (occurrence: CA)
  Receive Date: 20120319
  Receipt Date: 20130225
  Transmission Date: 20140127
  Serious: Yes (Death, Hospitalization, Other)
  Sender: FDA-Public Use
  Company Number: CA-GILEAD-2012-0052285

PATIENT
  Sex: Male

DRUGS (14)
  1. AMBRISENTAN [Suspect]
     Indication: PULMONARY HYPERTENSION
     Dosage: 10MG PER DAY
     Route: 048
     Dates: start: 20101221
  2. MIRTAZAPINE [Concomitant]
  3. TOLEXINE                           /00055701/ [Concomitant]
  4. CIPRALEX                           /01588501/ [Concomitant]
  5. WARFARIN [Concomitant]
  6. SEROQUEL [Concomitant]
  7. LANSOPRAZOLE [Concomitant]
  8. REVATIO [Concomitant]
  9. FUROSEMIDE [Concomitant]
  10. LORAZEPAM [Concomitant]
  11. ZOPICLONE [Concomitant]
  12. ADVAIR [Concomitant]
  13. VENTOLIN                           /00139501/ [Concomitant]
  14. OXYGEN [Concomitant]

REACTIONS (5)
  - Myocardial infarction [Unknown]
  - Panic attack [Unknown]
  - Chest discomfort [Unknown]
  - Oxygen saturation decreased [Unknown]
  - Death [Fatal]
